FAERS Safety Report 10854700 (Version 1)
Quarter: 2015Q1

REPORT INFORMATION
  Report Type: Spontaneous
  Country: US (occurrence: US)
  Receive Date: 20150223
  Receipt Date: 20150223
  Transmission Date: 20150721
  Serious: Yes (Hospitalization)
  Sender: FDA-Public Use
  Company Number: US-AUROBINDO-AUR-APL-2015-01417

PATIENT
  Age: 33 Year
  Sex: Male

DRUGS (3)
  1. ALPRAZOLAM. [Suspect]
     Active Substance: ALPRAZOLAM
     Indication: PRODUCT USED FOR UNKNOWN INDICATION
     Dosage: 4 MG, DAILY
     Route: 065
  2. ALPRAZOLAM. [Suspect]
     Active Substance: ALPRAZOLAM
     Dosage: 6-7 PILLS (TOTAL 14MG) DAILY
     Route: 065
  3. ALPRAZOLAM. [Suspect]
     Active Substance: ALPRAZOLAM
     Dosage: 2 MG, UNK
     Route: 065

REACTIONS (19)
  - Psychotic disorder [Unknown]
  - Delirium [Unknown]
  - Hypervigilance [Unknown]
  - Flight of ideas [Unknown]
  - Disorientation [Unknown]
  - Disturbance in attention [Unknown]
  - Memory impairment [Unknown]
  - Judgement impaired [Unknown]
  - Verbal abuse [Unknown]
  - Syncope [Unknown]
  - Agitation [Unknown]
  - Drug abuse [Unknown]
  - Withdrawal syndrome [Unknown]
  - Delusion [Unknown]
  - Overdose [Unknown]
  - Mental status changes [Unknown]
  - Altered state of consciousness [Unknown]
  - Abnormal behaviour [Unknown]
  - Poor quality sleep [Unknown]
